FAERS Safety Report 6508660-6 (Version None)
Quarter: 2009Q4

REPORT INFORMATION
  Report Type: 
  Country: None (occurrence: None)
  Receive Date: 20091221
  Receipt Date: 20090721
  Transmission Date: 20100525
  Serious: No
  Sender: FDA-Public Use
  Company Number: US-ASTRAZENECA-2009SE05434

PATIENT
  Age: 60 Year
  Sex: Male

DRUGS (7)
  1. CRESTOR [Suspect]
     Dosage: ONE-FORTH OF A 25 MG TABLET EVERY OTHER DAY
     Route: 048
  2. NIACIN [Suspect]
     Indication: BLOOD CHOLESTEROL INCREASED
  3. ASPIRIN [Concomitant]
  4. FISH OIL [Concomitant]
  5. GLUCOSAMIN/CHONDROITIN [Concomitant]
  6. UNSPECIFIED MULTIVITAMIN [Concomitant]
  7. ALCOHOL [Concomitant]

REACTIONS (2)
  - FLUSHING [None]
  - URINE COLOUR ABNORMAL [None]
